FAERS Safety Report 14368042 (Version 1)
Quarter: 2018Q1

REPORT INFORMATION
  Report Type: Report from Study
  Country: US (occurrence: US)
  Receive Date: 20180109
  Receipt Date: 20180109
  Transmission Date: 20180509
  Serious: Yes (Death, Hospitalization)
  Sender: FDA-Public Use
  Company Number: US-PFIZER INC-2018005332

PATIENT
  Age: 67 Year
  Sex: Female
  Weight: 78 kg

DRUGS (10)
  1. BENDAMUSTINE [Concomitant]
     Active Substance: BENDAMUSTINE
     Dosage: UNK
     Dates: start: 20160609, end: 20160610
  2. FLUDARABINE [Concomitant]
     Active Substance: FLUDARABINE PHOSPHATE
     Dosage: UNK
     Dates: start: 20170418, end: 20170422
  3. GEMCITABINE [Concomitant]
     Active Substance: GEMCITABINE\GEMCITABINE HYDROCHLORIDE
     Dosage: UNK
     Dates: start: 20160513, end: 20160527
  4. MELPHALAN. [Concomitant]
     Active Substance: MELPHALAN
     Dosage: UNK
     Dates: start: 20170422, end: 20170422
  5. RAPAMUNE [Suspect]
     Active Substance: SIROLIMUS
     Dosage: 0.5 MG, UNK
     Dates: start: 20170608, end: 20170608
  6. RAPAMUNE [Suspect]
     Active Substance: SIROLIMUS
     Dosage: 0.5 MG, UNK
     Dates: start: 20170613, end: 20170616
  7. NIVOLUMAB [Concomitant]
     Active Substance: NIVOLUMAB
     Dosage: UNK
     Dates: start: 20160926, end: 20170213
  8. TIMOGLOBULINA /00575401/ [Concomitant]
     Dosage: UNK
     Dates: start: 20170421, end: 20170424
  9. IBRUTINIB [Concomitant]
     Active Substance: IBRUTINIB
     Dosage: UNK
     Dates: start: 20160312, end: 20160516
  10. OXALIPLATIN. [Concomitant]
     Active Substance: OXALIPLATIN
     Dosage: UNK
     Dates: start: 20160513, end: 20160527

REACTIONS (1)
  - Multiple organ dysfunction syndrome [Fatal]

NARRATIVE: CASE EVENT DATE: 20170617
